FAERS Safety Report 16775046 (Version 1)
Quarter: 2019Q3

REPORT INFORMATION
  Report Type: Spontaneous
  Country: JP (occurrence: JP)
  Receive Date: 20190905
  Receipt Date: 20190905
  Transmission Date: 20191005
  Serious: Yes (Life-Threatening, Hospitalization, Other)
  Sender: FDA-Public Use
  Company Number: JP-ACCORD-153634

PATIENT
  Age: 30 Year
  Sex: Female

DRUGS (7)
  1. TACROLIMUS. [Suspect]
     Active Substance: TACROLIMUS
     Indication: IMMUNOSUPPRESSANT DRUG THERAPY
     Route: 048
  2. MYCOPHENOLATE MOFETIL. [Suspect]
     Active Substance: MYCOPHENOLATE MOFETIL
     Indication: IMMUNOSUPPRESSANT DRUG THERAPY
     Route: 048
  3. TACROLIMUS. [Suspect]
     Active Substance: TACROLIMUS
     Indication: IMMUNOSUPPRESSANT DRUG THERAPY
     Route: 048
  4. PREDNISOLONE. [Suspect]
     Active Substance: PREDNISOLONE
     Indication: IMMUNOSUPPRESSANT DRUG THERAPY
     Dosage: MAINTAINED AS IMMUNOSUPPRESSIVE THERAPY
     Route: 048
  5. BASILIXIMAB [Suspect]
     Active Substance: BASILIXIMAB
     Indication: IMMUNOSUPPRESSANT DRUG THERAPY
     Dosage: BASILIXIMAB (20 MG, INTRAVENOUS) WAS ADMINISTERED ON DAYS 0 AND 4 AFTER TRANSPLANTATION
     Route: 042
  6. MYCOPHENOLIC ACID. [Suspect]
     Active Substance: MYCOPHENOLIC ACID
     Indication: IMMUNOSUPPRESSANT DRUG THERAPY
     Dosage: MAINTAINED AS IMMUNOSUPPRESSIVE THERAPY
     Route: 048
  7. PREDNISOLONE. [Suspect]
     Active Substance: PREDNISOLONE
     Indication: IMMUNOSUPPRESSANT DRUG THERAPY
     Route: 048

REACTIONS (6)
  - Diffuse large B-cell lymphoma [Recovering/Resolving]
  - Lung neoplasm [Recovering/Resolving]
  - Post transplant lymphoproliferative disorder [Recovering/Resolving]
  - Leiomyosarcoma [Recovering/Resolving]
  - Hepatic neoplasm [Not Recovered/Not Resolved]
  - Spinal cord neoplasm [Unknown]
